FAERS Safety Report 24028285 (Version 1)
Quarter: 2024Q2

REPORT INFORMATION
  Report Type: Spontaneous
  Country: US (occurrence: None)
  Receive Date: 20240627
  Receipt Date: 20240627
  Transmission Date: 20240716
  Serious: No
  Sender: FDA-Public Use
  Company Number: None

PATIENT
  Age: 45 Year
  Sex: Female

DRUGS (1)
  1. AMBRISENTAN [Suspect]
     Active Substance: AMBRISENTAN
     Indication: Pulmonary hypertension
     Dosage: FREQUENCY : DAILY;?
     Route: 048
     Dates: start: 20181026

REACTIONS (5)
  - Peripheral swelling [None]
  - Pain in extremity [None]
  - Drug ineffective [None]
  - Product dose omission issue [None]
  - Gout [None]

NARRATIVE: CASE EVENT DATE: 20240626
